FAERS Safety Report 5971317-4 (Version None)
Quarter: 2008Q4

REPORT INFORMATION
  Report Type: 
  Country: None (occurrence: None)
  Receive Date: 20081128
  Receipt Date: 20081124
  Transmission Date: 20090506
  Serious: Yes (Other)
  Sender: FDA-Public Use
  Company Number: US-PFIZER INC-2008099960

PATIENT
  Sex: Female

DRUGS (2)
  1. AZITHROMYCIN [Suspect]
     Indication: TOOTH FRACTURE
     Dates: start: 20081119, end: 20081123
  2. MINOCYCLINE HCL [Concomitant]

REACTIONS (4)
  - CONSTIPATION [None]
  - MYALGIA [None]
  - NEOPLASM PROGRESSION [None]
  - PARAESTHESIA [None]
